FAERS Safety Report 18956945 (Version 1)
Quarter: 2021Q1

REPORT INFORMATION
  Report Type: Spontaneous
  Country: IN (occurrence: IN)
  Receive Date: 20210302
  Receipt Date: 20210302
  Transmission Date: 20210420
  Serious: Yes (Hospitalization, Other)
  Sender: FDA-Public Use
  Company Number: IN-SUN PHARMACEUTICAL INDUSTRIES LTD-2021R1-282734

PATIENT
  Sex: Male
  Weight: 2.4 kg

DRUGS (7)
  1. MIDAZOLAM. [Suspect]
     Active Substance: MIDAZOLAM
     Indication: SEIZURE
     Dosage: 2 MILLIGRAM
     Route: 064
  2. MIDAZOLAM. [Suspect]
     Active Substance: MIDAZOLAM
     Indication: ANALGESIC THERAPY
  3. FENTANYL. [Suspect]
     Active Substance: FENTANYL
     Indication: AMNESIA
     Dosage: 150 MICROGRAM
     Route: 064
  4. LABETALOL [Suspect]
     Active Substance: LABETALOL\LABETALOL HYDROCHLORIDE
     Indication: PRODUCT USED FOR UNKNOWN INDICATION
     Dosage: 10 MILLIGRAM
     Route: 064
  5. FENTANYL. [Suspect]
     Active Substance: FENTANYL
     Indication: ANALGESIC THERAPY
     Dosage: 50 MICROGRAM
     Route: 065
  6. PHENYTOIN. [Suspect]
     Active Substance: PHENYTOIN
     Indication: SEIZURE
     Dosage: 1000 MILLIGRAM LOADING DOSE
     Route: 064
  7. MIDAZOLAM. [Suspect]
     Active Substance: MIDAZOLAM
     Indication: AMNESIA
     Dosage: 1 MILLIGRAM
     Route: 042

REACTIONS (5)
  - Infantile apnoea [Unknown]
  - Foetal exposure during pregnancy [Unknown]
  - Bradycardia foetal [Unknown]
  - Low birth weight baby [Unknown]
  - Apgar score low [Unknown]
